FAERS Safety Report 9267663 (Version 1)
Quarter: 2013Q2

REPORT INFORMATION
  Report Type: Spontaneous
  Country: US (occurrence: US)
  Receive Date: 20130502
  Receipt Date: 20130502
  Transmission Date: 20140414
  Serious: No
  Sender: FDA-Public Use
  Company Number: US-ALEXION-A201200790

PATIENT
  Age: 10 Year
  Sex: Female

DRUGS (2)
  1. SOLIRIS 300MG [Suspect]
     Indication: HAEMOLYTIC URAEMIC SYNDROME
     Dosage: UNK
     Route: 042
  2. PROCARDIA [Concomitant]
     Dosage: 10 MG, UNK

REACTIONS (2)
  - Gastric disorder [Unknown]
  - Blood creatinine abnormal [Unknown]
